FAERS Safety Report 6456252-X (Version None)
Quarter: 2009Q4

REPORT INFORMATION
  Report Type: 
  Country: None (occurrence: None)
  Receive Date: 20091109
  Receipt Date: 20091109
  Transmission Date: 20100525
  Serious: Yes (Hospitalization)
  Sender: FDA-Public Use
  Company Number: 2009AL007133

PATIENT
  Age: 72 Year
  Sex: Female

DRUGS (8)
  1. FAMOTIDINE [Suspect]
     Dosage: 20 MG; QD;
  2. ESOMEPRAZOLE [Concomitant]
  3. ALFALFA SEEDS [Concomitant]
  4. POWDERED GINGER ROOT [Concomitant]
  5. SIBERIAN GINSENG ROOT [Concomitant]
  6. KOREAN GINSENG ROOT [Concomitant]
  7. GINKGO BILOBA [Concomitant]
  8. ECHINACEA [Concomitant]

REACTIONS (10)
  - AMNESIA [None]
  - ANAEMIA [None]
  - ASTHENIA [None]
  - CEREBRAL ATROPHY [None]
  - CONFUSIONAL STATE [None]
  - CONTUSION [None]
  - DEMENTIA [None]
  - GAIT DISTURBANCE [None]
  - SINUS TACHYCARDIA [None]
  - VITAMIN B12 DEFICIENCY [None]
